FAERS Safety Report 9611527 (Version 2)
Quarter: 2013Q4

REPORT INFORMATION
  Report Type: Spontaneous
  Country: IT (occurrence: IT)
  Receive Date: 20131010
  Receipt Date: 20131121
  Transmission Date: 20140711
  Serious: Yes (Other)
  Sender: FDA-Public Use
  Company Number: IT-BRISTOL-MYERS SQUIBB COMPANY-19462548

PATIENT
  Age: 82 Year
  Sex: Male

DRUGS (7)
  1. COUMADIN TABS 5 MG [Suspect]
     Route: 048
     Dates: start: 20130826
  2. DOXAZOSIN [Concomitant]
     Indication: HYPERTENSION
     Route: 048
     Dates: start: 20120101, end: 20130826
  3. AMIODARONE HCL [Concomitant]
     Indication: TACHYCARDIA
     Route: 048
     Dates: start: 20120101, end: 20130826
  4. CARDIOASPIRIN [Concomitant]
     Indication: CORONARY ARTERY DISEASE
     Dosage: TABS
     Route: 048
     Dates: start: 20120101, end: 20130826
  5. NORVASC [Concomitant]
     Indication: HYPERTENSION
     Route: 048
     Dates: start: 20120101, end: 20130826
  6. LASIX [Concomitant]
     Indication: HYPERTENSION
     Dosage: 25MG TABS
     Route: 048
     Dates: start: 20120101, end: 20130826
  7. PANTORC [Concomitant]
     Indication: PROPHYLAXIS
     Dosage: TABS
     Route: 048
     Dates: start: 20120101, end: 20130826

REACTIONS (3)
  - Coagulopathy [Recovering/Resolving]
  - Medication error [Unknown]
  - Gingival bleeding [Unknown]
